FAERS Safety Report 9578527 (Version 1)
Quarter: 2013Q4

REPORT INFORMATION
  Report Type: Spontaneous
  Country: US (occurrence: US)
  Receive Date: 20131001
  Receipt Date: 20131001
  Transmission Date: 20140711
  Serious: No
  Sender: FDA-Public Use
  Company Number: US-AMGEN-USASP2013013548

PATIENT
  Sex: Female

DRUGS (6)
  1. ENBREL [Suspect]
     Indication: PSORIATIC ARTHROPATHY
     Dosage: 50 MG, QWK
     Route: 058
  2. LEVOXYL [Concomitant]
     Dosage: 75 MUG, UNK
  3. LEXAPRO [Concomitant]
     Dosage: 5 MG, UNK
  4. VITAMIN D3 [Concomitant]
     Dosage: 1000 UNIT, UNK
  5. ZOCOR [Concomitant]
     Dosage: 10 MG, UNK
  6. ASPIRIN [Concomitant]
     Dosage: 81 MG EC, UNK

REACTIONS (5)
  - Respiratory disorder [Unknown]
  - Ear pain [Unknown]
  - Dizziness [Unknown]
  - Influenza like illness [Unknown]
  - Injection site bruising [Unknown]
